FAERS Safety Report 15666160 (Version 9)
Quarter: 2020Q1

REPORT INFORMATION
  Report Type: Report from Study
  Country: CA (occurrence: CA)
  Receive Date: 20181128
  Receipt Date: 20200318
  Transmission Date: 20200409
  Serious: Yes (Hospitalization, Other)
  Sender: FDA-Public Use
  Company Number: PHHY2015CA098812

PATIENT
  Age: 57 Year
  Sex: Male

DRUGS (8)
  1. SANDOSTATIN [Suspect]
     Active Substance: OCTREOTIDE ACETATE
     Indication: CARCINOID SYNDROME
     Dosage: 150 UG, TID
     Route: 058
     Dates: start: 20150709
  2. SANDOSTATIN LAR DEPOT [Suspect]
     Active Substance: OCTREOTIDE ACETATE
     Dosage: 30 MG, QMO
     Route: 030
     Dates: start: 20150909
  3. SANDOSTATIN LAR DEPOT [Suspect]
     Active Substance: OCTREOTIDE ACETATE
     Dosage: 40 MG, QMO
     Route: 030
  4. SANDOSTATIN LAR DEPOT [Suspect]
     Active Substance: OCTREOTIDE ACETATE
     Dosage: 60 MG, Q4W
     Route: 030
  5. COVERSYL [Concomitant]
     Active Substance: PERINDOPRIL
     Indication: PRODUCT USED FOR UNKNOWN INDICATION
     Dosage: 2 MG, UNK
     Route: 065
     Dates: start: 201502
  6. SANDOSTATIN LAR DEPOT [Suspect]
     Active Substance: OCTREOTIDE ACETATE
     Indication: CARCINOID SYNDROME
     Dosage: 20 MG, QMO
     Route: 030
     Dates: start: 20150812
  7. SANDOSTATIN LAR DEPOT [Suspect]
     Active Substance: OCTREOTIDE ACETATE
     Dosage: UNK
     Route: 030
     Dates: start: 20181120
  8. COVERSYL [Concomitant]
     Active Substance: PERINDOPRIL
     Dosage: 2 MG, UNK
     Route: 065
     Dates: start: 2016

REACTIONS (40)
  - Infection [Unknown]
  - Syncope [Unknown]
  - Metastases to liver [Unknown]
  - Hyperhidrosis [Unknown]
  - Feeling hot [Recovering/Resolving]
  - Diarrhoea [Recovered/Resolved]
  - Injection site induration [Unknown]
  - Inguinal hernia [Recovering/Resolving]
  - Stress [Unknown]
  - Body temperature decreased [Recovered/Resolved]
  - Syringe issue [Unknown]
  - Chills [Unknown]
  - Erythema [Unknown]
  - Myalgia [Unknown]
  - Vomiting [Recovering/Resolving]
  - Needle issue [Unknown]
  - Incorrect dose administered [Unknown]
  - Ocular icterus [Unknown]
  - Pyrexia [Unknown]
  - Hot flush [Unknown]
  - Pain in extremity [Unknown]
  - Feeling hot [Unknown]
  - Headache [Recovering/Resolving]
  - Nausea [Not Recovered/Not Resolved]
  - Diarrhoea [Not Recovered/Not Resolved]
  - Blood pressure decreased [Unknown]
  - Malignant neoplasm progression [Unknown]
  - Hepatic pain [Not Recovered/Not Resolved]
  - Insomnia [Not Recovered/Not Resolved]
  - Constipation [Unknown]
  - Decreased appetite [Unknown]
  - Diarrhoea [Recovered/Resolved]
  - Fatigue [Unknown]
  - Abdominal pain [Recovered/Resolved]
  - Injection site haemorrhage [Recovering/Resolving]
  - Injection site pain [Unknown]
  - Haematochezia [Unknown]
  - Cholelithiasis [Unknown]
  - Abdominal pain upper [Unknown]
  - Blood pressure increased [Unknown]

NARRATIVE: CASE EVENT DATE: 2015
